FAERS Safety Report 11276127 (Version 1)
Quarter: 2015Q3

REPORT INFORMATION
  Report Type: Spontaneous
  Country: US (occurrence: US)
  Receive Date: 20150716
  Receipt Date: 20150716
  Transmission Date: 20151125
  Serious: Yes (Hospitalization, Other)
  Sender: FDA-Public Use
  Company Number: US-GLAXOSMITHKLINE-US2014GSK054557

PATIENT
  Sex: Female

DRUGS (2)
  1. PROMACTA [Suspect]
     Active Substance: ELTROMBOPAG OLAMINE
     Indication: EVANS SYNDROME
     Dosage: 50 MG, QD
  2. PROMACTA [Suspect]
     Active Substance: ELTROMBOPAG OLAMINE
     Indication: AUTOIMMUNE HAEMOLYTIC ANAEMIA
     Dosage: 75 MG, QD
     Dates: start: 20140725

REACTIONS (4)
  - Hospitalisation [Unknown]
  - Cough [Unknown]
  - Diarrhoea [Unknown]
  - Pyrexia [Unknown]
